FAERS Safety Report 9936230 (Version 1)
Quarter: 2014Q1

REPORT INFORMATION
  Report Type: Spontaneous
  Country: US (occurrence: US)
  Receive Date: 20140228
  Receipt Date: 20140228
  Transmission Date: 20141002
  Serious: No
  Sender: FDA-Public Use
  Company Number: US-AMGEN-USASP2013090501

PATIENT
  Age: 54 Year
  Sex: Male

DRUGS (3)
  1. ENBREL [Suspect]
     Indication: ANKYLOSING SPONDYLITIS
     Dosage: 50 MG WEEKLY
     Route: 065
     Dates: start: 20130923
  2. PREDNISONE [Concomitant]
     Dosage: 20 MG, UNK
  3. PREDNISONE [Concomitant]
     Dosage: 5 MG, UNK
     Dates: start: 20130923

REACTIONS (5)
  - Pain in extremity [Not Recovered/Not Resolved]
  - Injection site pruritus [Recovered/Resolved]
  - Injection site reaction [Recovered/Resolved]
  - Injection site erythema [Recovered/Resolved]
  - Injection site rash [Recovered/Resolved]
